FAERS Safety Report 20616955 (Version 6)
Quarter: 2022Q2

REPORT INFORMATION
  Report Type: Spontaneous
  Country: JP (occurrence: JP)
  Receive Date: 20220321
  Receipt Date: 20220627
  Transmission Date: 20220721
  Serious: No
  Sender: FDA-Public Use
  Company Number: JP-MYLANLABS-2022M1019581

PATIENT
  Sex: Male

DRUGS (1)
  1. EPIPEN [Suspect]
     Active Substance: EPINEPHRINE
     Indication: Product used for unknown indication
     Route: 030

REACTIONS (4)
  - Injection site pain [Recovered/Resolved]
  - Accidental exposure to product [Unknown]
  - Expired product administered [Unknown]
  - Product quality issue [Unknown]
